FAERS Safety Report 24385212 (Version 3)
Quarter: 2025Q2

REPORT INFORMATION
  Report Type: Spontaneous
  Country: US (occurrence: US)
  Receive Date: 20241001
  Receipt Date: 20250421
  Transmission Date: 20250717
  Serious: Yes (Hospitalization, Other)
  Sender: GLENMARK
  Company Number: US-GLENMARK PHARMACEUTICALS-2024GMK094266

PATIENT

DRUGS (4)
  1. LACOSAMIDE [Interacting]
     Active Substance: LACOSAMIDE
     Indication: Seizure prophylaxis
     Dosage: 300 MILLIGRAM, BID (FOR OVER TWO YEARS)
     Route: 065
  2. CETIRIZINE [Interacting]
     Active Substance: CETIRIZINE HYDROCHLORIDE
     Indication: Urticaria
     Dosage: 10 MILLIGRAM, OD
     Route: 065
     Dates: start: 20240719, end: 20240721
  3. HYDROXYZINE [Interacting]
     Active Substance: HYDROXYZINE HYDROCHLORIDE
     Indication: Urticaria
     Route: 065
     Dates: start: 20240719, end: 20240721
  4. PREDNISONE [Interacting]
     Active Substance: PREDNISONE
     Indication: Urticaria
     Dosage: 3 DOSAGE FORM, QD, (3 TABLETS EACH DAY FOR 3 DAYS)
     Route: 065
     Dates: start: 20240719, end: 20240721

REACTIONS (10)
  - Road traffic accident [Recovered/Resolved]
  - Drug interaction [Recovered/Resolved]
  - Unresponsive to stimuli [Recovered/Resolved]
  - Screaming [Recovered/Resolved]
  - Altered state of consciousness [Recovered/Resolved]
  - Coma [Recovered/Resolved]
  - Scar [Not Recovered/Not Resolved]
  - Urticaria [Not Recovered/Not Resolved]
  - Product use in unapproved indication [Unknown]
  - Product communication issue [Unknown]

NARRATIVE: CASE EVENT DATE: 20240721
